FAERS Safety Report 18944558 (Version 1)
Quarter: 2021Q1

REPORT INFORMATION
  Report Type: Spontaneous
  Country: US (occurrence: US)
  Receive Date: 20210226
  Receipt Date: 20210226
  Transmission Date: 20210420
  Serious: Yes (Life-Threatening)
  Sender: FDA-Public Use
  Company Number: None

PATIENT
  Age: 55 Year
  Sex: Female
  Weight: 68.85 kg

DRUGS (14)
  1. SYNTHROID [Concomitant]
     Active Substance: LEVOTHYROXINE SODIUM
  2. PRALUENT [Concomitant]
     Active Substance: ALIROCUMAB
  3. SALINE [Concomitant]
     Active Substance: SODIUM CHLORIDE
  4. REQUIP [Concomitant]
     Active Substance: ROPINIROLE HYDROCHLORIDE
  5. BREO ELLIPTA [Concomitant]
     Active Substance: FLUTICASONE FUROATE\VILANTEROL TRIFENATATE
  6. MULTIVITAMINS [Concomitant]
     Active Substance: VITAMINS
  7. IMODIUM [Concomitant]
     Active Substance: LOPERAMIDE HYDROCHLORIDE
  8. SALINE NASAL RINSE [Concomitant]
     Active Substance: SODIUM CHLORIDE
  9. ATORVASTATIN [Suspect]
     Active Substance: ATORVASTATIN
     Indication: HYPERLIPIDAEMIA
     Dosage: 2017 YEAR
  10. CALCIUM SUPPLEMENT [Concomitant]
     Active Substance: CALCIUM
  11. CLARITIN [Concomitant]
     Active Substance: LORATADINE
  12. ALBUTEROL. [Concomitant]
     Active Substance: ALBUTEROL
  13. TYLENOL [Concomitant]
     Active Substance: ACETAMINOPHEN
  14. ADVIL [Concomitant]
     Active Substance: IBUPROFEN

REACTIONS (1)
  - Anaphylactic reaction [None]

NARRATIVE: CASE EVENT DATE: 20170401
